FAERS Safety Report 11402563 (Version 1)
Quarter: 2015Q3

REPORT INFORMATION
  Report Type: Spontaneous
  Country: US (occurrence: US)
  Receive Date: 20150821
  Receipt Date: 20150821
  Transmission Date: 20151125
  Serious: Yes (Other)
  Sender: FDA-Public Use
  Company Number: US-ROCHE-1286958

PATIENT
  Age: 49 Year
  Sex: Male

DRUGS (6)
  1. LISINOPRIL. [Concomitant]
     Active Substance: LISINOPRIL
     Route: 065
  2. PEG-INTERFERON ALFA 2A [Suspect]
     Active Substance: PEGINTERFERON ALFA-2A
     Indication: FOCAL SEGMENTAL GLOMERULOSCLEROSIS
  3. FUROSEMIDE. [Concomitant]
     Active Substance: FUROSEMIDE
     Route: 065
  4. RIBAVIRIN. [Suspect]
     Active Substance: RIBAVIRIN
     Indication: HEPATITIS C
     Route: 048
  5. RIBAVIRIN. [Suspect]
     Active Substance: RIBAVIRIN
     Indication: FOCAL SEGMENTAL GLOMERULOSCLEROSIS
     Dosage: DOSE REDUCED
     Route: 048
  6. PEG-INTERFERON ALFA 2A [Suspect]
     Active Substance: PEGINTERFERON ALFA-2A
     Indication: HEPATITIS C
     Route: 058

REACTIONS (7)
  - Irritability [Unknown]
  - Nausea [Unknown]
  - Weight decreased [Unknown]
  - Fatigue [Unknown]
  - Myalgia [Unknown]
  - Anaemia [Unknown]
  - Disturbance in attention [Unknown]
